FAERS Safety Report 18795681 (Version 3)
Quarter: 2021Q1

REPORT INFORMATION
  Report Type: Report from Study
  Country: FR (occurrence: FR)
  Receive Date: 20210127
  Receipt Date: 20210303
  Transmission Date: 20210419
  Serious: Yes (Death, Life-Threatening, Hospitalization, Other)
  Sender: FDA-Public Use
  Company Number: NVSC2021FR015512

PATIENT
  Sex: Female
  Weight: 60 kg

DRUGS (1)
  1. BYL719 [Suspect]
     Active Substance: ALPELISIB
     Indication: BREAST CANCER METASTATIC
     Dosage: 300 MG, QD
     Route: 048
     Dates: start: 20201017, end: 20201025

REACTIONS (22)
  - Rash [Unknown]
  - Generalised oedema [Unknown]
  - Hepatic lesion [Unknown]
  - Liver disorder [Unknown]
  - Pneumoperitoneum [Fatal]
  - Ascites [Fatal]
  - Colitis [Fatal]
  - Pyrexia [Unknown]
  - Necrosis [Fatal]
  - Diarrhoea [Unknown]
  - Bronchial disorder [Unknown]
  - Pleural effusion [Unknown]
  - Lung opacity [Unknown]
  - Large intestine perforation [Fatal]
  - Abdominal pain [Fatal]
  - Tachycardia [Fatal]
  - Bone lesion [Unknown]
  - Dyspnoea [Fatal]
  - Hyperglycaemia [Unknown]
  - Anaemia [Unknown]
  - Hypoalbuminaemia [Unknown]
  - Asthenia [Not Recovered/Not Resolved]

NARRATIVE: CASE EVENT DATE: 20201025
